FAERS Safety Report 18113349 (Version 3)
Quarter: 2020Q3

REPORT INFORMATION
  Report Type: Spontaneous
  Country: US (occurrence: US)
  Receive Date: 20200805
  Receipt Date: 20200818
  Transmission Date: 20201103
  Serious: No
  Sender: FDA-Public Use
  Company Number: US-PFIZER INC-2020294890

PATIENT
  Age: 71 Year
  Sex: Male
  Weight: 94 kg

DRUGS (2)
  1. INSPRA [Suspect]
     Active Substance: EPLERENONE
     Dosage: 50 MG, 2X/DAY
  2. INSPRA [Suspect]
     Active Substance: EPLERENONE
     Indication: FLUID RETENTION
     Dosage: 50 MG (ONCE OR TWICE DAILY BUT DOESN^T REMEMBER WHICH)

REACTIONS (3)
  - Off label use [Unknown]
  - Memory impairment [Unknown]
  - Product use in unapproved indication [Unknown]
